FAERS Safety Report 6713693-0 (Version None)
Quarter: 2010Q2

REPORT INFORMATION
  Report Type: 
  Country: None (occurrence: None)
  Receive Date: 20100504
  Receipt Date: 20100423
  Transmission Date: 20101027
  Serious: Yes (Hospitalization)
  Sender: FDA-Public Use
  Company Number: 7002751

PATIENT
  Age: 47 Year
  Sex: Male

DRUGS (1)
  1. REBIF [Suspect]
     Dates: start: 20070301

REACTIONS (1)
  - CHOLELITHIASIS [None]
